FAERS Safety Report 18523025 (Version 1)
Quarter: 2020Q4

REPORT INFORMATION
  Report Type: Report from Study
  Country: US (occurrence: US)
  Receive Date: 20201119
  Receipt Date: 20201119
  Transmission Date: 20210114
  Serious: Yes (Hospitalization, Other)
  Sender: FDA-Public Use
  Company Number: US-JNJFOC-20201125979

PATIENT

DRUGS (2)
  1. ULTRAM [Suspect]
     Active Substance: TRAMADOL HYDROCHLORIDE
     Indication: PAIN MANAGEMENT
     Route: 065
  2. DURAGESIC [Suspect]
     Active Substance: FENTANYL
     Indication: PAIN MANAGEMENT
     Route: 065

REACTIONS (8)
  - Deep vein thrombosis [Unknown]
  - Acute kidney injury [Unknown]
  - Procedural pain [Unknown]
  - Hospitalisation [Unknown]
  - Wound complication [Unknown]
  - Transfusion [Unknown]
  - Urinary tract infection [Unknown]
  - Emergency care [Unknown]
